FAERS Safety Report 13652489 (Version 2)
Quarter: 2017Q3

REPORT INFORMATION
  Report Type: Report from Study
  Country: US (occurrence: US)
  Receive Date: 20170614
  Receipt Date: 20170703
  Transmission Date: 20171127
  Serious: Yes (Hospitalization)
  Sender: FDA-Public Use
  Company Number: US-ACTELION-A-NJ2017-154249

PATIENT
  Age: 65 Year
  Sex: Female
  Weight: 79.37 kg

DRUGS (5)
  1. OPSUMIT [Suspect]
     Active Substance: MACITENTAN
     Indication: PULMONARY ARTERIAL HYPERTENSION
     Dosage: 10 MG, QD
     Route: 048
     Dates: start: 20161115, end: 20170508
  2. PREDNISONE. [Concomitant]
     Active Substance: PREDNISONE
  3. OXYGEN. [Concomitant]
     Active Substance: OXYGEN
  4. LASIX [Concomitant]
     Active Substance: FUROSEMIDE
     Dosage: 40 MG, QD
  5. XARELTO [Concomitant]
     Active Substance: RIVAROXABAN

REACTIONS (9)
  - Transfusion [Unknown]
  - Vitamin B12 decreased [Unknown]
  - Anaemia [Recovered/Resolved]
  - Haemoglobin decreased [Recovered/Resolved]
  - Gait disturbance [Unknown]
  - Dyspnoea exertional [Unknown]
  - Blood lactate dehydrogenase increased [Unknown]
  - Blood iron decreased [Recovered/Resolved]
  - Iron binding capacity total decreased [Recovered/Resolved]

NARRATIVE: CASE EVENT DATE: 201704
